FAERS Safety Report 6817359-8 (Version None)
Quarter: 2010Q3

REPORT INFORMATION
  Report Type: 
  Country: None (occurrence: None)
  Receive Date: 20100706
  Receipt Date: 20100702
  Transmission Date: 20110219
  Serious: Yes (Death, Hospitalization)
  Sender: FDA-Public Use
  Company Number: DK-AMGEN-KDC421900

PATIENT

DRUGS (1)
  1. VECTIBIX [Suspect]
     Indication: COLORECTAL CANCER

REACTIONS (6)
  - DEATH [None]
  - DIARRHOEA [None]
  - NEUTROPENIA [None]
  - PULMONARY OEDEMA [None]
  - PYREXIA [None]
  - RENAL FAILURE [None]
